FAERS Safety Report 19755443 (Version 1)
Quarter: 2021Q3

REPORT INFORMATION
  Report Type: Spontaneous
  Country: US (occurrence: US)
  Receive Date: 20210827
  Receipt Date: 20210827
  Transmission Date: 20211014
  Serious: Yes (Hospitalization, Other)
  Sender: FDA-Public Use
  Company Number: US-SHILPA MEDICARE LIMITED-SML-US-2021-01011

PATIENT
  Age: 63 Year
  Sex: Female

DRUGS (3)
  1. IMATINIB, UNKNOWN [Suspect]
     Active Substance: IMATINIB
     Indication: CHRONIC MYELOID LEUKAEMIA
     Route: 065
  2. IMATINIB, UNKNOWN [Interacting]
     Active Substance: IMATINIB
     Route: 065
  3. PALBOCICLIB [Interacting]
     Active Substance: PALBOCICLIB
     Indication: BREAST CANCER METASTATIC

REACTIONS (4)
  - Drug interaction [Unknown]
  - Myalgia [Unknown]
  - Neutropenia [Unknown]
  - Renal failure [Unknown]
